FAERS Safety Report 8452504-2 (Version None)
Quarter: 2012Q2

REPORT INFORMATION
  Report Type: 
  Country: None (occurrence: None)
  Receive Date: 20120620
  Receipt Date: 20120612
  Transmission Date: 20120825
  Serious: Yes (Other)
  Sender: FDA-Public Use
  Company Number: PHHY2012CA051144

PATIENT
  Sex: Female

DRUGS (3)
  1. GILENYA [Suspect]
     Dosage: 0.5 MG, QD
     Route: 048
     Dates: start: 20120611, end: 20120612
  2. SYMBICORT [Concomitant]
     Dosage: UNK UKN, UNK
  3. VITAMIN D [Concomitant]
     Dosage: UNK UKN, UNK

REACTIONS (8)
  - SINUS BRADYCARDIA [None]
  - CARDIAC MURMUR [None]
  - ELECTROCARDIOGRAM ABNORMAL [None]
  - BLOOD PRESSURE DECREASED [None]
  - FATIGUE [None]
  - SINUS ARRHYTHMIA [None]
  - BRADYCARDIA [None]
  - DIZZINESS [None]
